FAERS Safety Report 9230271 (Version 1)
Quarter: 2013Q1

REPORT INFORMATION
  Report Type: Spontaneous
  Country: US (occurrence: None)
  Receive Date: 20121023
  Receipt Date: 20121023
  Transmission Date: 20140127
  Serious: No
  Sender: FDA-Public Use
  Company Number: 2012AL000062

PATIENT
  Age: 28 Year
  Sex: Male

DRUGS (1)
  1. FOLOTYN (PRALATREXATE) [Suspect]
     Indication: T-CELL LYMPHOMA
     Route: 042
     Dates: start: 20120426, end: 20120524

REACTIONS (1)
  - Toxicity to various agents [None]
